FAERS Safety Report 11230339 (Version 1)
Quarter: 2015Q3

REPORT INFORMATION
  Report Type: Spontaneous
  Country: US (occurrence: US)
  Receive Date: 20150701
  Receipt Date: 20150701
  Transmission Date: 20151125
  Serious: No
  Sender: FDA-Public Use
  Company Number: US-ACCORD-028896

PATIENT
  Age: 53 Year
  Sex: Male

DRUGS (1)
  1. LETROZOLE ACCORD [Suspect]
     Active Substance: LETROZOLE
     Indication: PRODUCT USED FOR UNKNOWN INDICATION
     Dosage: EXP. DATE IS AUG. 2016
     Dates: start: 20140710

REACTIONS (3)
  - Pain in extremity [Unknown]
  - Arthralgia [Unknown]
  - Trigger finger [Unknown]

NARRATIVE: CASE EVENT DATE: 201412
